FAERS Safety Report 8421661-6 (Version None)
Quarter: 2012Q2

REPORT INFORMATION
  Report Type: 
  Country: None (occurrence: None)
  Receive Date: 20120608
  Receipt Date: 20120131
  Transmission Date: 20120825
  Serious: Yes (Death, Hospitalization)
  Sender: FDA-Public Use
  Company Number: US-ASTELLAS-2012US000404

PATIENT
  Sex: Female

DRUGS (2)
  1. TARCEVA [Suspect]
     Indication: PRODUCT USED FOR UNKNOWN INDICATION
     Dosage: UNK
     Route: 048
  2. GEMCITABINE [Concomitant]
     Indication: PRODUCT USED FOR UNKNOWN INDICATION
     Dosage: UNK
     Route: 065

REACTIONS (9)
  - MICTURITION URGENCY [None]
  - ABDOMINAL PAIN [None]
  - LETHARGY [None]
  - DEATH [None]
  - PANCREATIC CARCINOMA METASTATIC [None]
  - ASCITES [None]
  - AZOTAEMIA [None]
  - RENAL FAILURE [None]
  - HYPOVOLAEMIA [None]
